FAERS Safety Report 11197287 (Version 1)
Quarter: 2015Q2

REPORT INFORMATION
  Report Type: Spontaneous
  Country: DE (occurrence: DE)
  Receive Date: 20150617
  Receipt Date: 20150617
  Transmission Date: 20150821
  Serious: Yes (Hospitalization, Other)
  Sender: FDA-Public Use
  Company Number: DE-MEDA-2015060009

PATIENT
  Sex: Female

DRUGS (1)
  1. ESTRADIOL. [Suspect]
     Active Substance: ESTRADIOL
     Indication: POSTMENOPAUSE

REACTIONS (6)
  - Dementia Alzheimer^s type [Unknown]
  - Cataract [Unknown]
  - Pterygium [Unknown]
  - Ultrasound scan abnormal [Unknown]
  - Cerebral atrophy [Unknown]
  - Kayser-Fleischer ring [Unknown]
